FAERS Safety Report 8458808-1 (Version None)
Quarter: 2012Q2

REPORT INFORMATION
  Report Type: 
  Country: None (occurrence: None)
  Receive Date: 20120622
  Receipt Date: 20120614
  Transmission Date: 20120825
  Serious: Yes (Hospitalization)
  Sender: FDA-Public Use
  Company Number: PL-SANOFI-AVENTIS-2012SA026161

PATIENT
  Age: 63 Year
  Sex: Female
  Weight: 66.2 kg

DRUGS (6)
  1. TIALORID [Concomitant]
  2. TRITACE [Concomitant]
     Dosage: STARTED FEW MONTHS AGO
     Route: 048
  3. ARAVA [Suspect]
     Indication: RHEUMATOID ARTHRITIS
     Route: 048
     Dates: start: 20120202, end: 20120404
  4. BISOPROLOL FUMARATE [Concomitant]
     Dosage: STARTED FEW MONTHS AGO
     Route: 048
  5. MELOXICAM [Concomitant]
     Indication: RHEUMATOID ARTHRITIS
     Route: 048
  6. POLPRAZOL [Concomitant]
     Dosage: STARTED FEW MONTHS AGO
     Route: 048

REACTIONS (3)
  - ASPARTATE AMINOTRANSFERASE INCREASED [None]
  - ALANINE AMINOTRANSFERASE INCREASED [None]
  - GAMMA-GLUTAMYLTRANSFERASE INCREASED [None]
